FAERS Safety Report 10177782 (Version 1)
Quarter: 2014Q2

REPORT INFORMATION
  Report Type: Spontaneous
  Country: US (occurrence: US)
  Receive Date: 20140516
  Receipt Date: 20140516
  Transmission Date: 20141212
  Serious: No
  Sender: FDA-Public Use
  Company Number: US-SANOFI-AVENTIS-2013SA081467

PATIENT
  Age: 57 Year
  Sex: Female

DRUGS (2)
  1. APIDRA SOLOSTAR [Suspect]
     Indication: TYPE 1 DIABETES MELLITUS
     Dosage: PRODUCT STARTED FROM THREE YEARS AGO. DOSE : 4-10 UNITS.
     Route: 058
  2. SOLOSTAR [Concomitant]
     Indication: TYPE 1 DIABETES MELLITUS
     Dosage: PRODUCT STARTED THREE YEARS AGO.

REACTIONS (3)
  - Weight increased [Unknown]
  - Blood glucose decreased [Unknown]
  - Drug administration error [Unknown]
